FAERS Safety Report 9015299 (Version 1)
Quarter: 2013Q1

REPORT INFORMATION
  Report Type: Spontaneous
  Country: US (occurrence: US)
  Receive Date: 20130116
  Receipt Date: 20130116
  Transmission Date: 20140127
  Serious: Yes (Life-Threatening, Hospitalization, Other)
  Sender: FDA-Public Use
  Company Number: US-009507513-1201USA04243

PATIENT
  Age: 16 Year
  Sex: Male
  Weight: 52.16 kg

DRUGS (3)
  1. SINGULAIR [Suspect]
     Indication: MULTIPLE ALLERGIES
     Dosage: 1 DF, QD
     Route: 048
     Dates: start: 20100416, end: 20100423
  2. CLARINEX [Concomitant]
  3. OPTIVAR OPHTHALMIC SOLUTION [Concomitant]

REACTIONS (2)
  - Abnormal behaviour [Unknown]
  - Suicide attempt [Unknown]
